FAERS Safety Report 7650199-9 (Version None)
Quarter: 2011Q3

REPORT INFORMATION
  Report Type: 
  Country: None (occurrence: None)
  Receive Date: 20110802
  Receipt Date: 20110719
  Transmission Date: 20111222
  Serious: Yes (Hospitalization, Other)
  Sender: FDA-Public Use
  Company Number: DE-MYLANLABS-2011S1014864

PATIENT
  Age: 25 Year
  Sex: Male

DRUGS (1)
  1. MIRTAZAPINE [Suspect]
     Indication: SLEEP DISORDER
     Dosage: DAILY DOSE: 30 MG MILLIGRAM(S) EVERY DAY
     Route: 048
     Dates: start: 20110426

REACTIONS (3)
  - PULMONARY EMBOLISM [None]
  - PNEUMONIA [None]
  - DEEP VEIN THROMBOSIS [None]
